FAERS Safety Report 6176133-9 (Version None)
Quarter: 2009Q2

REPORT INFORMATION
  Report Type: 
  Country: None (occurrence: None)
  Receive Date: 20090501
  Receipt Date: 20090424
  Transmission Date: 20091009
  Serious: Yes (Death)
  Sender: FDA-Public Use
  Company Number: JP-GENENTECH-267294

PATIENT
  Age: 65 Year
  Sex: Female

DRUGS (5)
  1. RITUXAN [Suspect]
     Indication: EXTRANODAL MARGINAL ZONE B-CELL LYMPHOMA (MALT TYPE)
     Dosage: 542 MG, UNK
  2. CYCLOPHOSPHAMIDE [Suspect]
     Indication: EXTRANODAL MARGINAL ZONE B-CELL LYMPHOMA (MALT TYPE)
     Dosage: UNK
     Dates: start: 20040801
  3. DOXORUBICIN HCL [Suspect]
     Indication: EXTRANODAL MARGINAL ZONE B-CELL LYMPHOMA (MALT TYPE)
  4. PREDNISOLONE [Suspect]
     Indication: EXTRANODAL MARGINAL ZONE B-CELL LYMPHOMA (MALT TYPE)
     Dosage: UNK
     Dates: start: 20040801
  5. VINCRISTINE [Suspect]
     Indication: EXTRANODAL MARGINAL ZONE B-CELL LYMPHOMA (MALT TYPE)
     Dosage: UNK
     Dates: start: 20040801

REACTIONS (1)
  - HEPATITIS B [None]
